FAERS Safety Report 7069260-5 (Version None)
Quarter: 2010Q4

REPORT INFORMATION
  Report Type: 
  Country: None (occurrence: None)
  Receive Date: 20101028
  Receipt Date: 20101025
  Transmission Date: 20110411
  Serious: Yes (Life-Threatening, Hospitalization, Other)
  Sender: FDA-Public Use
  Company Number: CA-CELGENEUS-028-C5013-10102641

PATIENT
  Sex: Female

DRUGS (7)
  1. THALOMID [Suspect]
     Indication: MULTIPLE MYELOMA
     Route: 048
     Dates: start: 20100909
  2. THALOMID [Suspect]
     Route: 048
     Dates: end: 20101020
  3. PREDNISONE [Suspect]
     Indication: MULTIPLE MYELOMA
     Route: 065
     Dates: start: 20100909
  4. PREDNISONE [Suspect]
     Route: 065
     Dates: end: 20100912
  5. MELPHALAN HYDROCHLORIDE [Suspect]
     Indication: MULTIPLE MYELOMA
     Route: 065
     Dates: start: 20100909
  6. MELPHALAN HYDROCHLORIDE [Suspect]
     Route: 065
     Dates: end: 20100912
  7. ASPIRIN [Concomitant]
     Route: 048
     Dates: start: 20100909, end: 20100920

REACTIONS (2)
  - ANAEMIA [None]
  - SPINAL CORD COMPRESSION [None]
